FAERS Safety Report 23162522 (Version 3)
Quarter: 2024Q2

REPORT INFORMATION
  Report Type: Spontaneous
  Country: US (occurrence: US)
  Receive Date: 20231109
  Receipt Date: 20240419
  Transmission Date: 20240716
  Serious: Yes (Life-Threatening, Hospitalization, Disabling)
  Sender: FDA-Public Use
  Company Number: US-KEDRION-2023-000404

PATIENT
  Age: 38 Year
  Sex: Female

DRUGS (3)
  1. HUMAN RHO(D) IMMUNE GLOBULIN [Suspect]
     Active Substance: HUMAN RHO(D) IMMUNE GLOBULIN
     Indication: Rhesus incompatibility
     Route: 030
     Dates: start: 20231019, end: 20231019
  2. AMLODIPINE [Concomitant]
     Active Substance: AMLODIPINE BESYLATE
     Indication: Product used for unknown indication
     Route: 065
  3. LIPITOR [Concomitant]
     Active Substance: ATORVASTATIN CALCIUM
     Indication: Product used for unknown indication
     Route: 065

REACTIONS (16)
  - Foetal monitoring abnormal [Unknown]
  - Hypertension [Unknown]
  - Product administration error [Recovered/Resolved with Sequelae]
  - Dizziness [Recovering/Resolving]
  - Headache [Not Recovered/Not Resolved]
  - Nausea [Recovering/Resolving]
  - Chromaturia [Recovering/Resolving]
  - Thirst [Recovering/Resolving]
  - Dry mouth [Recovering/Resolving]
  - Visual impairment [Recovering/Resolving]
  - Vomiting [Unknown]
  - Asthenia [Unknown]
  - Dysstasia [Unknown]
  - Eclampsia [Recovered/Resolved with Sequelae]
  - Caesarean section [Recovered/Resolved]
  - Live birth [Recovered/Resolved]

NARRATIVE: CASE EVENT DATE: 20231019
